FAERS Safety Report 16873693 (Version 1)
Quarter: 2019Q4

REPORT INFORMATION
  Report Type: Spontaneous
  Country: US (occurrence: US)
  Receive Date: 20191001
  Receipt Date: 20191001
  Transmission Date: 20200122
  Serious: Yes (Hospitalization)
  Sender: FDA-Public Use
  Company Number: US-TARO-2019TAR00666

PATIENT
  Age: 74 Year
  Sex: Male
  Weight: 120.18 kg

DRUGS (5)
  1. BABY ASA [Concomitant]
     Active Substance: ASPIRIN
  2. CLOBETASOL PROPIONATE OINTMENT USP 0.05% [Suspect]
     Active Substance: CLOBETASOL PROPIONATE
     Indication: PSORIASIS
     Dosage: ^THIN FILM^, 2X/DAY
     Route: 061
     Dates: start: 20190908, end: 201909
  3. CALCIPOTRIENE. [Suspect]
     Active Substance: CALCIPOTRIENE
     Indication: PSORIASIS
     Dosage: UNK, 2X/DAY (SATURDAY AND SUNDAY)
     Dates: start: 2019, end: 20190916
  4. UNSPECIFIED BLOOD PRESSURE MEDICATION [Concomitant]
     Active Substance: UNSPECIFIED INGREDIENT
     Dosage: UNK
  5. GABAPENTIN. [Concomitant]
     Active Substance: GABAPENTIN
     Indication: HYPOAESTHESIA

REACTIONS (6)
  - Musculoskeletal stiffness [Recovering/Resolving]
  - Gait inability [Recovered/Resolved]
  - Gait disturbance [Recovering/Resolving]
  - Motor dysfunction [Recovering/Resolving]
  - Migraine [Recovered/Resolved]
  - Headache [Not Recovered/Not Resolved]

NARRATIVE: CASE EVENT DATE: 201909
